FAERS Safety Report 9192044 (Version 1)
Quarter: 2013Q1

REPORT INFORMATION
  Report Type: Spontaneous
  Country: US (occurrence: None)
  Receive Date: 20130325
  Receipt Date: 20130325
  Transmission Date: 20140127
  Serious: Yes (Death)
  Sender: FDA-Public Use
  Company Number: FK201300820

PATIENT
  Age: 53 Year
  Sex: Female

DRUGS (4)
  1. HEPARIN SODIUM [Suspect]
     Indication: ANTICOAGULANT THERAPY
  2. CLOPIDOGREL (CLOPIDOGREL) [Suspect]
     Indication: ANTICOAGULANT THERAPY
  3. ASPIRIN (ACETYLSALICYLIC ACID) [Suspect]
     Indication: ANTICOAGULANT THERAPY
  4. VASOPRESSOR [Suspect]
     Indication: ANTICOAGULANT THERAPY

REACTIONS (8)
  - Stress cardiomyopathy [None]
  - Disseminated intravascular coagulation [None]
  - Brain herniation [None]
  - Brain herniation [None]
  - Heparin-induced thrombocytopenia [None]
  - Haemorrhagic stroke [None]
  - Procedural nausea [None]
  - Respiratory alkalosis [None]
